FAERS Safety Report 15690073 (Version 1)
Quarter: 2018Q4

REPORT INFORMATION
  Report Type: Spontaneous
  Country: RU (occurrence: RU)
  Receive Date: 20181205
  Receipt Date: 20181205
  Transmission Date: 20190205
  Serious: Yes (Other)
  Sender: FDA-Public Use
  Company Number: PHHY2018RU160041

PATIENT
  Age: 4 Year
  Sex: Female

DRUGS (2)
  1. ILARIS [Suspect]
     Active Substance: CANAKINUMAB
     Dosage: 4 UNK, UNK (EVERY 4 WEEKS)
     Route: 058
  2. ILARIS [Suspect]
     Active Substance: CANAKINUMAB
     Indication: ENTEROCOLITIS
     Dosage: 4 MG/KG, UNK (EVERY 4 WEEKS)
     Route: 065

REACTIONS (4)
  - Pyrexia [Recovered/Resolved]
  - Condition aggravated [Unknown]
  - Product use in unapproved indication [Unknown]
  - Rash [Recovered/Resolved]
